FAERS Safety Report 20065624 (Version 1)
Quarter: 2021Q4

REPORT INFORMATION
  Report Type: Spontaneous
  Country: US (occurrence: US)
  Receive Date: 20211113
  Receipt Date: 20211113
  Transmission Date: 20220304
  Serious: Yes (Other)
  Sender: FDA-Public Use
  Company Number: US-TEVA-2021-US-1976249

PATIENT
  Sex: Female

DRUGS (14)
  1. COPAXONE [Suspect]
     Active Substance: GLATIRAMER ACETATE
     Indication: Multiple sclerosis
     Dosage: FORM STRENGTH: UNKNOWN
     Route: 065
  2. OCREVUS [Concomitant]
     Active Substance: OCRELIZUMAB
     Route: 065
  3. DIAZEPAM [Concomitant]
     Active Substance: DIAZEPAM
     Route: 065
  4. NEURONTIN [Concomitant]
     Active Substance: GABAPENTIN
     Route: 065
  5. FLEXERIL [Concomitant]
     Active Substance: CYCLOBENZAPRINE HYDROCHLORIDE
     Route: 065
  6. DETROL [Concomitant]
     Active Substance: TOLTERODINE TARTRATE
     Route: 065
  7. ADDERALL [Concomitant]
     Active Substance: AMPHETAMINE ASPARTATE\AMPHETAMINE SULFATE\DEXTROAMPHETAMINE SACCHARATE\DEXTROAMPHETAMINE SULFATE
     Route: 065
  8. HYDROCODONE [Concomitant]
     Active Substance: HYDROCODONE
     Route: 065
  9. MECLIZINE [Concomitant]
     Active Substance: MECLIZINE HYDROCHLORIDE
     Route: 065
  10. ROBAXIN [Concomitant]
     Active Substance: METHOCARBAMOL
     Route: 065
  11. TIZANIDINE [Concomitant]
     Active Substance: TIZANIDINE
     Route: 065
  12. Testosterone 2% cream [Concomitant]
     Route: 065
  13. ESTRACE [Concomitant]
     Active Substance: ESTRADIOL
     Route: 065
  14. LEVOFLOXACIN [Concomitant]
     Active Substance: LEVOFLOXACIN
     Route: 065

REACTIONS (1)
  - Multiple sclerosis [Unknown]
